FAERS Safety Report 8770596 (Version 1)
Quarter: 2012Q4

REPORT INFORMATION
  Report Type: 
  Country: US (occurrence: US)
  Receive Date: 20120906
  Receipt Date: 20120906
  Transmission Date: 20130627
  Serious: No
  Sender: FDA-Public Use
  Company Number: US-BAYER-2012-092120

PATIENT
  Age: 40 Year
  Sex: Female
  Weight: 67.12 kg

DRUGS (13)
  1. ALEVE CAPLET/TABLET,MIDOL EXTENDED RELIEF CAPLET [Suspect]
     Indication: PAIN IN EXTREMITY
     Dosage: 2 DF, BID
     Route: 048
     Dates: start: 201207
  2. TRICOR [Concomitant]
  3. ESTRADIOL [Concomitant]
  4. SYNTHROID [Concomitant]
  5. SIMVASTATIN [Concomitant]
  6. NAMENDA [Concomitant]
  7. IMITREX [Concomitant]
  8. KLONOPIN [Concomitant]
  9. LAMICTAL [Concomitant]
  10. LITHIUM [Concomitant]
  11. SEROQUEL [Concomitant]
  12. TEMAZEPAM [Concomitant]
  13. SOMNOTE [Concomitant]

REACTIONS (2)
  - Heart rate decreased [Not Recovered/Not Resolved]
  - Weight loss poor [Not Recovered/Not Resolved]
